FAERS Safety Report 13853354 (Version 2)
Quarter: 2017Q3

REPORT INFORMATION
  Report Type: Spontaneous
  Country: US (occurrence: US)
  Receive Date: 20170810
  Receipt Date: 20170830
  Transmission Date: 20171127
  Serious: Yes (Hospitalization, Other)
  Sender: FDA-Public Use
  Company Number: US-APOTEX-2013AP000753

PATIENT
  Age: 55 Year
  Sex: Female

DRUGS (12)
  1. MORPHINE [Suspect]
     Active Substance: MORPHINE
     Indication: BREAKTHROUGH PAIN
     Dosage: 40MG TOTAL DOSE ON DAY 2
     Route: 042
  2. FENTANYL. [Suspect]
     Active Substance: FENTANYL
     Indication: CANCER PAIN
     Dosage: 50 MICROG/H
     Route: 062
  3. HYDROCODONE BITARTRATE AND ACETAMINOPHEN [Suspect]
     Active Substance: ACETAMINOPHEN\HYDROCODONE BITARTRATE
     Indication: BREAKTHROUGH PAIN
     Dosage: 10/325MG; UP TO 6 TABLETS/DAY
     Route: 065
  4. TACROLIMUS. [Suspect]
     Active Substance: TACROLIMUS
     Indication: IMMUNOSUPPRESSANT DRUG THERAPY
     Route: 065
  5. DULOXETINE. [Concomitant]
     Active Substance: DULOXETINE
     Indication: CANCER PAIN
     Dosage: 20MG DAILY
     Route: 065
  6. KETAMINE [Concomitant]
     Active Substance: KETAMINE
     Indication: CANCER PAIN
     Dosage: 5 MG, Q.6H
     Route: 048
  7. ROPIVACAINE [Concomitant]
     Active Substance: ROPIVACAINE
     Dosage: INFUSION OF 8 ML/HOUR OF 0.2%
     Route: 041
  8. FENTANYL. [Suspect]
     Active Substance: FENTANYL
     Dosage: 75 ?G, Q.H.
     Route: 062
  9. ROPIVACAINE [Concomitant]
     Active Substance: ROPIVACAINE
     Indication: CANCER PAIN
     Dosage: BOLUS OF 0.5%
     Route: 040
  10. METHADONE [Suspect]
     Active Substance: METHADONE HYDROCHLORIDE
     Indication: CANCER PAIN
     Route: 048
  11. GABAPENTIN. [Suspect]
     Active Substance: GABAPENTIN
     Indication: PRODUCT USED FOR UNKNOWN INDICATION
     Route: 065
  12. MORPHINE [Suspect]
     Active Substance: MORPHINE
     Indication: CANCER PAIN
     Route: 042

REACTIONS (9)
  - Delirium [Recovered/Resolved]
  - Chronic kidney disease [Unknown]
  - Stupor [Recovered/Resolved]
  - Adverse event [Unknown]
  - Drug ineffective [Unknown]
  - Diabetes mellitus [Unknown]
  - Sluggishness [Unknown]
  - Mental status changes [Recovered/Resolved]
  - Fall [Unknown]
